FAERS Safety Report 21643108 (Version 1)
Quarter: 2022Q4

REPORT INFORMATION
  Report Type: Spontaneous
  Country: JP (occurrence: None)
  Receive Date: 20221125
  Receipt Date: 20221125
  Transmission Date: 20230113
  Serious: Yes (Other)
  Sender: FDA-Public Use
  Company Number: 2022A343570

PATIENT
  Age: 53 Year
  Sex: Male

DRUGS (6)
  1. IMFINZI [Suspect]
     Active Substance: DURVALUMAB
     Indication: Non-small cell lung cancer
     Route: 041
     Dates: start: 20211028, end: 20220812
  2. IMFINZI [Suspect]
     Active Substance: DURVALUMAB
     Indication: Non-small cell lung cancer
     Route: 041
     Dates: end: 20221006
  3. PREDNISOLONE [Concomitant]
     Active Substance: PREDNISOLONE
     Indication: Organising pneumonia
     Route: 065
     Dates: start: 20210617, end: 20220908
  4. PREDNISOLONE [Concomitant]
     Active Substance: PREDNISOLONE
     Indication: Organising pneumonia
     Route: 065
     Dates: start: 20221006
  5. SULFAMETHOXAZOLE\TRIMETHOPRIM [Concomitant]
     Active Substance: SULFAMETHOXAZOLE\TRIMETHOPRIM
     Dosage: UNKNOWN DOSE
     Route: 065
  6. VONOPRAZAN FUMARATE [Concomitant]
     Active Substance: VONOPRAZAN FUMARATE
     Dosage: UNKNOWN DOSE
     Route: 065

REACTIONS (3)
  - Malignant neoplasm progression [Unknown]
  - Organising pneumonia [Not Recovered/Not Resolved]
  - Radiation pneumonitis [Not Recovered/Not Resolved]

NARRATIVE: CASE EVENT DATE: 20220806
